FAERS Safety Report 6018022-6 (Version None)
Quarter: 2008Q4

REPORT INFORMATION
  Report Type: 
  Country: None (occurrence: None)
  Receive Date: 20081223
  Receipt Date: 20081219
  Transmission Date: 20090506
  Serious: Yes (Hospitalization)
  Sender: FDA-Public Use
  Company Number: B0551260A

PATIENT
  Age: 77 Year
  Sex: Male

DRUGS (6)
  1. CLAMOXYL [Suspect]
     Indication: ERYSIPELAS
     Route: 048
     Dates: start: 20081013, end: 20081019
  2. MONOTILDIEM [Concomitant]
     Route: 065
  3. LARGACTIL [Concomitant]
     Route: 065
  4. TIAPRIDAL [Concomitant]
     Route: 065
  5. TEGRETOL [Concomitant]
     Route: 065
  6. ATARAX [Concomitant]
     Route: 065

REACTIONS (3)
  - GENERAL PHYSICAL HEALTH DETERIORATION [None]
  - HAEMATURIA [None]
  - RENAL FAILURE ACUTE [None]
